FAERS Safety Report 4764353-7 (Version None)
Quarter: 2005Q3

REPORT INFORMATION
  Report Type: 
  Country: None (occurrence: None)
  Receive Date: 20050907
  Receipt Date: 20050823
  Transmission Date: 20060218
  Serious: Yes (Disabling)
  Sender: FDA-Public Use
  Company Number: 2005-0008479

PATIENT
  Age: 27 Year
  Sex: Female

DRUGS (9)
  1. TENOFOVIR DISOPROXIL FUMARATE (TENOFOVIR DISOPROXIL FUMARATE) [Suspect]
     Indication: HIV INFECTION
     Dosage: ORAL
     Route: 048
     Dates: start: 20031124
  2. LAMIVUDINE [Suspect]
     Indication: HIV INFECTION
     Dates: start: 20031124
  3. ZIDOVUDINE [Suspect]
     Indication: HIV INFECTION
     Dates: start: 20031124
  4. ISONIAZID [Suspect]
     Indication: PULMONARY TUBERCULOSIS
  5. STREPTOMYCIN [Concomitant]
  6. PYRAZINAMIDE [Concomitant]
  7. ETHAMBUTOL (ETHAMBUTOL) [Concomitant]
  8. RIFAMPICIN [Concomitant]
  9. PYRIDOXINE (PYRIDOXINE) [Concomitant]

REACTIONS (7)
  - ACTIVITIES OF DAILY LIVING IMPAIRED [None]
  - ARTHRALGIA [None]
  - ARTHROPATHY [None]
  - JOINT RANGE OF MOTION DECREASED [None]
  - MUSCLE ABSCESS [None]
  - MYALGIA [None]
  - PAIN [None]
